FAERS Safety Report 20657400 (Version 1)
Quarter: 2022Q1

REPORT INFORMATION
  Report Type: Other
  Country: PL (occurrence: None)
  Receive Date: 20220331
  Receipt Date: 20220331
  Transmission Date: 20220424
  Serious: Yes (Hospitalization)
  Sender: FDA-Public Use
  Company Number: PL-KRKA-PL2022K02860LIT

PATIENT
  Age: 17 Year
  Sex: Female

DRUGS (17)
  1. RITUXIMAB [Suspect]
     Active Substance: RITUXIMAB
     Indication: Epstein-Barr virus infection reactivation
     Dosage: 375 MG/M2, PER WEEK
     Route: 065
  2. CYCLOSPORINE [Suspect]
     Active Substance: CYCLOSPORINE
     Indication: Prophylaxis against graft versus host disease
     Route: 065
  3. THYMOGLOBULINE [Suspect]
     Active Substance: LAPINE T-LYMPHOCYTE IMMUNE GLOBULIN
     Indication: Lymphodepletion
     Dosage: 7.5 MG/KG
     Route: 065
  4. TREOSULFAN [Suspect]
     Active Substance: TREOSULFAN
     Indication: Product used for unknown indication
     Dosage: 14 G/M2 DAILY FOR 3 DAYS
     Route: 065
  5. FLUDARABINE [Suspect]
     Active Substance: FLUDARABINE PHOSPHATE
     Indication: Product used for unknown indication
     Dosage: 30 MG/M2, PER DAY
     Route: 065
  6. IMATINIB [Suspect]
     Active Substance: IMATINIB
     Indication: Acute lymphocytic leukaemia
     Route: 065
  7. TACROLIMUS [Suspect]
     Active Substance: TACROLIMUS
     Indication: Epstein-Barr virus infection reactivation
     Route: 065
  8. GANCICLOVIR [Concomitant]
     Active Substance: GANCICLOVIR
     Indication: Infection prophylaxis
     Dosage: 10 MG/KG, PER DAY
     Route: 065
  9. MEROPENEM [Concomitant]
     Active Substance: MEROPENEM
     Indication: Febrile neutropenia
  10. PRIVIGEN [Concomitant]
     Active Substance: HUMAN IMMUNOGLOBULIN G
     Indication: Infection prophylaxis
  11. FLUCONAZOLE [Concomitant]
     Active Substance: FLUCONAZOLE
     Indication: Infection prophylaxis
  12. POSACONAZOLE [Concomitant]
     Active Substance: POSACONAZOLE
     Indication: Febrile neutropenia
  13. PENICILLIN V [Concomitant]
     Active Substance: PENICILLIN V
     Indication: Infection prophylaxis
  14. CLINDAMYCIN [Concomitant]
     Active Substance: CLINDAMYCIN
  15. CIDOFOVIR [Concomitant]
     Active Substance: CIDOFOVIR
     Indication: BK polyomavirus test positive
  16. COTRIMOXAZOLE [Concomitant]
     Active Substance: SULFAMETHOXAZOLE\TRIMETHOPRIM
     Indication: Infection prophylaxis
  17. VANCOMYCIN [Concomitant]
     Active Substance: VANCOMYCIN
     Indication: Staphylococcal bacteraemia

REACTIONS (8)
  - BK polyomavirus test positive [Recovering/Resolving]
  - Herpes simplex reactivation [Recovering/Resolving]
  - Epstein-Barr virus infection reactivation [Recovering/Resolving]
  - Cytomegalovirus viraemia [Recovering/Resolving]
  - Cytomegalovirus infection reactivation [Recovering/Resolving]
  - Cystitis haemorrhagic [Recovering/Resolving]
  - Cerebral toxoplasmosis [Recovering/Resolving]
  - Adenovirus reactivation [Recovering/Resolving]
